FAERS Safety Report 9461677 (Version 1)
Quarter: 2013Q3

REPORT INFORMATION
  Report Type: Spontaneous
  Country: US (occurrence: US)
  Receive Date: 20130816
  Receipt Date: 20130816
  Transmission Date: 20140515
  Serious: No
  Sender: FDA-Public Use
  Company Number: US-B.I. PHARMACEUTICALS,INC./RIDGEFIELD-2013-BI-24531GE

PATIENT
  Sex: Male

DRUGS (2)
  1. ALTEPLASE [Suspect]
     Indication: PERIPHERAL ARTERIAL OCCLUSIVE DISEASE
     Route: 042
  2. WARFARIN (WARFARIN SODIUM) [Concomitant]

REACTIONS (1)
  - International normalised ratio increased [Unknown]
